FAERS Safety Report 23836775 (Version 1)
Quarter: 2024Q2

REPORT INFORMATION
  Report Type: Spontaneous
  Country: GB (occurrence: GB)
  Receive Date: 20240509
  Receipt Date: 20240509
  Transmission Date: 20240716
  Serious: Yes (Other)
  Sender: FDA-Public Use
  Company Number: None

PATIENT
  Age: 78 Year
  Sex: Female
  Weight: 49 kg

DRUGS (2)
  1. LANSOPRAZOLE [Suspect]
     Active Substance: LANSOPRAZOLE
     Dosage: ONE TO BE TAKEN EACH MORNING
     Route: 065
  2. FAMOTIDINE [Concomitant]
     Active Substance: FAMOTIDINE
     Dosage: ONE TO BE TAKEN AT NIGHT
     Route: 065
     Dates: start: 20240125

REACTIONS (2)
  - Type 2 diabetes mellitus [Unknown]
  - Diarrhoea [Recovering/Resolving]
